FAERS Safety Report 14711059 (Version 1)
Quarter: 2018Q2

REPORT INFORMATION
  Report Type: Report from Study
  Country: ES (occurrence: ES)
  Receive Date: 20180403
  Receipt Date: 20180403
  Transmission Date: 20180711
  Serious: Yes (Hospitalization)
  Sender: FDA-Public Use
  Company Number: ES-TEVA-2018-ES-875002

PATIENT
  Age: 58 Year
  Sex: Male

DRUGS (4)
  1. AZITROMICINA 500 [Suspect]
     Active Substance: AZITHROMYCIN
     Indication: RESPIRATORY TRACT INFECTION
     Dosage: 1 DF PER DAY
     Route: 048
     Dates: start: 20161209, end: 20161211
  2. PRAVASTATINA  ALTER 10 MG COMPRIMIDOS EFG, 28 COMPRIMIDOS [Concomitant]
     Dosage: 0-0-1
     Route: 065
     Dates: start: 2014
  3. CYMBALTA 30 MG CAPSULAS DURAS GASTRORRESISTENTES , 7 C?PSULAS [Concomitant]
     Dosage: 1 DF PER DAY
     Route: 048
     Dates: start: 2014
  4. AMOXICILINA CLAVULANICO [Concomitant]
     Dosage: 1-1-1
     Route: 048
     Dates: start: 20160921, end: 20160927

REACTIONS (3)
  - Hepatitis [Recovering/Resolving]
  - Liver disorder [Recovering/Resolving]
  - Hyperbilirubinaemia [Recovering/Resolving]

NARRATIVE: CASE EVENT DATE: 20161227
